FAERS Safety Report 16266676 (Version 1)
Quarter: 2019Q2

REPORT INFORMATION
  Report Type: Spontaneous
  Country: CA (occurrence: CA)
  Receive Date: 20190502
  Receipt Date: 20190502
  Transmission Date: 20190711
  Serious: Yes (Other)
  Sender: FDA-Public Use
  Company Number: CA-PFIZER INC-2019184068

PATIENT
  Age: 87 Year
  Sex: Male
  Weight: 88.44 kg

DRUGS (4)
  1. RAMIPRIL. [Concomitant]
     Active Substance: RAMIPRIL
     Dosage: UNK
  2. AVALIDE [Concomitant]
     Active Substance: HYDROCHLOROTHIAZIDE\IRBESARTAN
     Dosage: UNK
  3. TOVIAZ [Suspect]
     Active Substance: FESOTERODINE FUMARATE
     Indication: DYSURIA
     Dosage: 4 MG, 1X/DAY
     Route: 048
  4. CRESTOR [Concomitant]
     Active Substance: ROSUVASTATIN CALCIUM
     Dosage: UNK

REACTIONS (5)
  - Urinary retention [Recovered/Resolved]
  - Product use in unapproved indication [Unknown]
  - Micturition urgency [Recovered/Resolved]
  - Bladder obstruction [Recovered/Resolved]
  - Sleep disorder due to a general medical condition [Recovered/Resolved]
